FAERS Safety Report 9103888 (Version 1)
Quarter: 2013Q1

REPORT INFORMATION
  Report Type: Spontaneous
  Country: IT (occurrence: IT)
  Receive Date: 20130219
  Receipt Date: 20130219
  Transmission Date: 20140127
  Serious: Yes (Hospitalization)
  Sender: FDA-Public Use
  Company Number: IT-ACCORD-016538

PATIENT
  Sex: Male
  Weight: 1.07 kg

DRUGS (3)
  1. FLUOROURACIL [Suspect]
     Indication: COLON CANCER METASTATIC
     Route: 064
  2. LEUCOVORIN [Suspect]
     Indication: COLON CANCER METASTATIC
     Route: 064
  3. IRINOTECAN HYDROCHLORIDE [Suspect]
     Indication: COLON CANCER METASTATIC
     Route: 064

REACTIONS (2)
  - Foetal growth restriction [Recovered/Resolved]
  - Premature baby [Recovered/Resolved]
